FAERS Safety Report 5948400-2 (Version None)
Quarter: 2008Q4

REPORT INFORMATION
  Report Type: 
  Country: None (occurrence: None)
  Receive Date: 20081110
  Receipt Date: 20081110
  Transmission Date: 20090506
  Serious: No
  Sender: FDA-Public Use
  Company Number: None

PATIENT
  Age: 52 Year
  Sex: Female
  Weight: 70.3075 kg

DRUGS (1)
  1. CLARINDAMYCIN GENERIC [Suspect]
     Indication: SINUSITIS
     Dosage: 2/DAY PO
     Route: 048
     Dates: start: 20081025, end: 20081027

REACTIONS (6)
  - ABDOMINAL DISCOMFORT [None]
  - DYSGEUSIA [None]
  - NAUSEA [None]
  - PAROSMIA [None]
  - PRURITUS [None]
  - VERTIGO [None]
